FAERS Safety Report 9255369 (Version 1)
Quarter: 2013Q2

REPORT INFORMATION
  Report Type: Spontaneous
  Country: JP (occurrence: JP)
  Receive Date: 20130425
  Receipt Date: 20130425
  Transmission Date: 20140414
  Serious: Yes (Hospitalization, Other)
  Sender: FDA-Public Use
  Company Number: JP-ASTRAZENECA-2013SE14636

PATIENT
  Age: 47 Year
  Sex: Male

DRUGS (6)
  1. SEROQUEL [Suspect]
     Indication: DELUSION
     Route: 048
     Dates: start: 20110208, end: 20110212
  2. SEROQUEL [Suspect]
     Indication: SCHIZOPHRENIA
     Route: 048
     Dates: start: 20110208, end: 20110212
  3. SERENACE [Suspect]
     Indication: SCHIZOPHRENIA
     Route: 048
     Dates: end: 20110201
  4. WINTERMIN [Suspect]
     Indication: SCHIZOPHRENIA
     Route: 048
     Dates: end: 20110201
  5. DANTRIUM [Concomitant]
     Dates: start: 20110131, end: 2011
  6. SILECE [Concomitant]
     Indication: SCHIZOPHRENIA
     Route: 048
     Dates: end: 20110201

REACTIONS (2)
  - Neuroleptic malignant syndrome [Recovered/Resolved]
  - Renal failure [Recovered/Resolved]
